FAERS Safety Report 23564843 (Version 1)
Quarter: 2024Q1

REPORT INFORMATION
  Report Type: Spontaneous
  Country: US (occurrence: None)
  Receive Date: 20240223
  Receipt Date: 20240223
  Transmission Date: 20240410
  Serious: Yes (Death)
  Sender: FDA-Public Use
  Company Number: None

PATIENT
  Sex: Female

DRUGS (2)
  1. OPSUMIT [Suspect]
     Active Substance: MACITENTAN
     Indication: Pulmonary arterial hypertension
     Dosage: FREQUENCY : DAILY;?
     Route: 048
     Dates: start: 202309
  2. TADALAFIL [Concomitant]
     Active Substance: TADALAFIL

REACTIONS (4)
  - Acute respiratory failure [None]
  - Right ventricular failure [None]
  - Pulmonary hypertension [None]
  - Cardiogenic shock [None]
